FAERS Safety Report 19254965 (Version 1)
Quarter: 2021Q2

REPORT INFORMATION
  Report Type: Spontaneous
  Country: CA (occurrence: CA)
  Receive Date: 20210513
  Receipt Date: 20210513
  Transmission Date: 20210717
  Serious: Yes (Other)
  Sender: FDA-Public Use
  Company Number: CA-ACCORD-224823

PATIENT
  Age: 69 Year
  Sex: Female

DRUGS (6)
  1. PALBOCICLIB [Concomitant]
     Active Substance: PALBOCICLIB
     Route: 065
  2. LETROZOLE. [Concomitant]
     Active Substance: LETROZOLE
     Route: 065
  3. CALCIUM [Concomitant]
     Active Substance: CALCIUM
     Route: 065
  4. ANASTROZOLE. [Suspect]
     Active Substance: ANASTROZOLE
     Route: 048
  5. VITAMINS NOS [Concomitant]
     Active Substance: VITAMINS
     Route: 065
  6. ZOLEDRONIC ACID [Concomitant]
     Active Substance: ZOLEDRONIC ACID
     Route: 065

REACTIONS (6)
  - Subclavian vein thrombosis [Unknown]
  - Skin reaction [Unknown]
  - Malignant neoplasm progression [Unknown]
  - Papilloedema [Unknown]
  - Jugular vein thrombosis [Unknown]
  - Weight increased [Unknown]
